FAERS Safety Report 6643784-4 (Version None)
Quarter: 2010Q1

REPORT INFORMATION
  Report Type: 
  Country: None (occurrence: None)
  Receive Date: 20100322
  Receipt Date: 20100310
  Transmission Date: 20100710
  Serious: Yes (Other)
  Sender: FDA-Public Use
  Company Number: US-JNJFOC-20100304066

PATIENT
  Age: 78 Year
  Sex: Female
  Weight: 71.22 kg

DRUGS (1)
  1. EXTRA STRENGTH TYLENOL PM CAPLET [Suspect]
     Indication: INSOMNIA
     Dosage: 3 TIMES PER WEEK AT BEDTIME
     Route: 048

REACTIONS (9)
  - ABDOMINAL PAIN [None]
  - COUGH [None]
  - DIARRHOEA [None]
  - DIPLOPIA [None]
  - HERPES ZOSTER [None]
  - NAUSEA [None]
  - PRODUCT QUALITY ISSUE [None]
  - THYROID DISORDER [None]
  - WEIGHT DECREASED [None]
